FAERS Safety Report 9575643 (Version 2)
Quarter: 2013Q4

REPORT INFORMATION
  Report Type: Spontaneous
  Country: JP (occurrence: JP)
  Receive Date: 20131001
  Receipt Date: 20131010
  Transmission Date: 20140711
  Serious: Yes (Hospitalization)
  Sender: FDA-Public Use
  Company Number: JP-B.I. PHARMACEUTICALS,INC./RIDGEFIELD-2013-BI-30227NB

PATIENT
  Age: 67 Year
  Sex: Male

DRUGS (4)
  1. SPIRIVA [Suspect]
     Route: 065
  2. DIURETICS [Concomitant]
  3. WARFARIN (WARFARIN POTASSIUM) [Concomitant]
  4. ADOAIR (SALMETEROL XINAFOATE FLUTICASONE PROPIONATE) [Concomitant]

REACTIONS (1)
  - Cardiac valve replacement complication [Not Recovered/Not Resolved]
